FAERS Safety Report 9425119 (Version 6)
Quarter: 2013Q3

REPORT INFORMATION
  Report Type: Report from Study
  Country: SE (occurrence: SE)
  Receive Date: 20130729
  Receipt Date: 20130923
  Transmission Date: 20140515
  Serious: Yes (Hospitalization, Other)
  Sender: FDA-Public Use
  Company Number: SE-BAYER-2013-089405

PATIENT
  Age: 71 Year
  Sex: Male
  Weight: 75.6 kg

DRUGS (7)
  1. ALPHARADIN [Suspect]
     Indication: HORMONE-REFRACTORY PROSTATE CANCER
     Dosage: 50 KBQ/KG
     Route: 042
     Dates: start: 20130418, end: 20130418
  2. ALPHARADIN [Suspect]
     Indication: HORMONE-REFRACTORY PROSTATE CANCER
     Dosage: 50 KBQ/KG
     Route: 042
     Dates: start: 20130527, end: 20130527
  3. ALPHARADIN [Suspect]
     Indication: HORMONE-REFRACTORY PROSTATE CANCER
     Dosage: 50 KBQ/KG
     Route: 042
     Dates: start: 20130624, end: 20130624
  4. ALPHARADIN [Suspect]
     Indication: HORMONE-REFRACTORY PROSTATE CANCER
     Dosage: 50 KBQ/KG
     Route: 042
     Dates: start: 20130813, end: 20130813
  5. PREDNISOLONE [Concomitant]
     Indication: NAUSEA
     Dosage: 5 MG DAILY
     Route: 048
     Dates: start: 20130418
  6. PREDNISOLONE [Concomitant]
     Indication: DECREASED APPETITE
  7. SUPREFACT DEPOT [Concomitant]
     Indication: PROSTATE CANCER
     Dosage: 9.45 MG DAILY
     Route: 058

REACTIONS (3)
  - Anaemia [Recovered/Resolved]
  - Platelet count decreased [Recovering/Resolving]
  - Platelet count decreased [Not Recovered/Not Resolved]
